FAERS Safety Report 16860215 (Version 1)
Quarter: 2019Q4

REPORT INFORMATION
  Report Type: Spontaneous
  Country: US (occurrence: US)
  Receive Date: 20190927
  Receipt Date: 20190927
  Transmission Date: 20200122
  Serious: Yes (Other)
  Sender: FDA-Public Use
  Company Number: None

PATIENT
  Age: 60 Year
  Sex: Female
  Weight: 57.8 kg

DRUGS (1)
  1. GAZYVA [Suspect]
     Active Substance: OBINUTUZUMAB
     Indication: B-CELL LYMPHOMA
     Route: 041
     Dates: start: 20190926

REACTIONS (4)
  - Erythema [None]
  - Flushing [None]
  - Dyspnoea [None]
  - Chest discomfort [None]

NARRATIVE: CASE EVENT DATE: 20190926
